FAERS Safety Report 22276889 (Version 1)
Quarter: 2023Q2

REPORT INFORMATION
  Report Type: Report from Study
  Country: ZA (occurrence: ZA)
  Receive Date: 20230503
  Receipt Date: 20230503
  Transmission Date: 20230722
  Serious: Yes (Hospitalization)
  Sender: FDA-Public Use
  Company Number: ZA-002147023-NVSC2023ZA099975

PATIENT
  Age: 1 Year
  Sex: Male
  Weight: 8.6 kg

DRUGS (3)
  1. AMPICILLIN [Suspect]
     Active Substance: AMPICILLIN
     Indication: Pneumonia
     Dosage: NO TREATMENT
     Route: 065
  2. AMPICILLIN [Suspect]
     Active Substance: AMPICILLIN
     Dosage: 500 UNK
     Route: 042
     Dates: start: 20230307
  3. GENTAMICIN [Concomitant]
     Active Substance: GENTAMICIN
     Indication: Product used for unknown indication
     Dosage: 50 UNK
     Route: 042
     Dates: start: 20230307

REACTIONS (1)
  - Pneumonia [Recovered/Resolved]

NARRATIVE: CASE EVENT DATE: 20230301
